FAERS Safety Report 19451144 (Version 1)
Quarter: 2021Q2

REPORT INFORMATION
  Report Type: Spontaneous
  Country: US (occurrence: US)
  Receive Date: 20210622
  Receipt Date: 20210622
  Transmission Date: 20210717
  Serious: Yes (Other)
  Sender: FDA-Public Use
  Company Number: None

PATIENT
  Age: 72 Year
  Sex: Male
  Weight: 98.55 kg

DRUGS (21)
  1. ASPIRIN 81MG [Concomitant]
     Active Substance: ASPIRIN
  2. GUAIFENESIN 600MG [Concomitant]
  3. ATORVASTATIN 40MG [Concomitant]
     Active Substance: ATORVASTATIN
  4. SPIRONOLACTONE 25MG [Concomitant]
     Active Substance: SPIRONOLACTONE
  5. XANAX [Concomitant]
     Active Substance: ALPRAZOLAM
  6. SYMBICORT 160?4.5MCG [Concomitant]
  7. TESTOSTERONE CYPIONATE. [Concomitant]
     Active Substance: TESTOSTERONE CYPIONATE
  8. NITROGLYCERIN 0.4MG [Concomitant]
  9. SERTRALINE [Concomitant]
     Active Substance: SERTRALINE HYDROCHLORIDE
  10. ONDANSETRON 4MG [Concomitant]
     Active Substance: ONDANSETRON
  11. PLAVIX [Concomitant]
     Active Substance: CLOPIDOGREL BISULFATE
  12. METOPROLOL TARTRATE 25MG [Concomitant]
     Active Substance: METOPROLOL TARTRATE
  13. ALBUTEROL 108MCG [Concomitant]
     Active Substance: ALBUTEROL
  14. BACLOFEN 10MG [Concomitant]
     Active Substance: BACLOFEN
  15. INLYTA [Suspect]
     Active Substance: AXITINIB
     Indication: RENAL CANCER
     Route: 048
     Dates: start: 20210219, end: 20210617
  16. BENZONATATE 100MG [Concomitant]
     Active Substance: BENZONATATE
  17. FLUTICASONE 50MCG [Concomitant]
     Active Substance: FLUTICASONE
  18. VITAMIN D [Concomitant]
     Active Substance: VITAMIN D NOS
  19. ELIQUIS [Concomitant]
     Active Substance: APIXABAN
  20. OXYCODONE 10MG [Concomitant]
     Active Substance: OXYCODONE
  21. NYSTATIN. [Concomitant]
     Active Substance: NYSTATIN

REACTIONS (1)
  - Hospice care [None]

NARRATIVE: CASE EVENT DATE: 20210617
